FAERS Safety Report 20660095 (Version 1)
Quarter: 2022Q1

REPORT INFORMATION
  Report Type: Spontaneous
  Country: CN (occurrence: None)
  Receive Date: 20220331
  Receipt Date: 20220331
  Transmission Date: 20220424
  Serious: Yes (Hospitalization, Other)
  Sender: FDA-Public Use
  Company Number: 2022A127909

PATIENT
  Age: 17864 Day
  Sex: Male

DRUGS (2)
  1. TAGRISSO [Suspect]
     Active Substance: OSIMERTINIB
     Indication: Lung neoplasm malignant
     Route: 048
     Dates: start: 20211205, end: 20220305
  2. PHOSPHOLIPID [Concomitant]
     Active Substance: PHOSPHOLIPID
     Indication: Liver disorder
     Dosage: 2 CAPSULES AT A TIME
     Route: 048
     Dates: start: 20220312, end: 20220317

REACTIONS (7)
  - Hepatic function abnormal [Recovering/Resolving]
  - Dysphonia [Recovering/Resolving]
  - Tachypnoea [Recovering/Resolving]
  - Asthenia [Recovering/Resolving]
  - Mouth ulceration [Recovering/Resolving]
  - Abdominal distension [Recovering/Resolving]
  - Decreased appetite [Recovering/Resolving]

NARRATIVE: CASE EVENT DATE: 20220306
